FAERS Safety Report 18350140 (Version 1)
Quarter: 2020Q4

REPORT INFORMATION
  Report Type: Spontaneous
  Country: NP (occurrence: NP)
  Receive Date: 20201006
  Receipt Date: 20201006
  Transmission Date: 20210114
  Serious: Yes (Other)
  Sender: FDA-Public Use
  Company Number: PHHY2018NP195938

PATIENT
  Age: 30 Year
  Sex: Male

DRUGS (2)
  1. GLIVEC [Suspect]
     Active Substance: IMATINIB MESYLATE
     Indication: CHRONIC MYELOID LEUKAEMIA
     Dosage: 400 MG (100 MG TABLETS X 4)
     Route: 065
  2. GLIVEC [Suspect]
     Active Substance: IMATINIB MESYLATE
     Dosage: 600 MG (6 X 100 MG TABLETS)
     Route: 065

REACTIONS (2)
  - Animal bite [Unknown]
  - COVID-19 [Unknown]

NARRATIVE: CASE EVENT DATE: 20200929
